FAERS Safety Report 8256274-2 (Version None)
Quarter: 2012Q2

REPORT INFORMATION
  Report Type: 
  Country: None (occurrence: None)
  Receive Date: 20120403
  Receipt Date: 20120323
  Transmission Date: 20120825
  Serious: Yes (Other)
  Sender: FDA-Public Use
  Company Number: DK-VERTEX PHARMACEUTICALS INC.-000000000000000378

PATIENT
  Sex: Female

DRUGS (1)
  1. INCIVO (TELAPREVIR) [Suspect]
     Indication: PRODUCT USED FOR UNKNOWN INDICATION
     Dosage: DOSAGE FORM: TABLET

REACTIONS (2)
  - DRUG INEFFECTIVE [None]
  - CYSTITIS HAEMORRHAGIC [None]
